FAERS Safety Report 10153728 (Version 1)
Quarter: 2014Q2

REPORT INFORMATION
  Report Type: Spontaneous
  Country: GB (occurrence: GB)
  Receive Date: 20140506
  Receipt Date: 20140506
  Transmission Date: 20141212
  Serious: Yes (Other)
  Sender: FDA-Public Use
  Company Number: GB-ACCORD-023389

PATIENT
  Age: 80 Year
  Sex: Female
  Weight: 66.9 kg

DRUGS (12)
  1. ACIDEX [Concomitant]
     Dates: start: 20140407
  2. GLICLAZIDE [Concomitant]
     Dates: start: 20140113
  3. OMEPRAZOLE [Concomitant]
     Dates: start: 20140113
  4. LEVOTHYROXINE [Concomitant]
     Dates: start: 20140113
  5. NITROFURANTOIN/NITROFURANTOIN SODIUM [Concomitant]
     Dates: start: 20140113
  6. INSTILLAGEL [Concomitant]
     Dates: start: 20140113, end: 20140329
  7. FUROSEMIDE [Concomitant]
     Dates: start: 20140113
  8. LAXIDO [Concomitant]
     Dates: start: 20140227, end: 20140329
  9. SIMVASTATIN [Concomitant]
     Dates: start: 20140113
  10. CO-CODAMOL [Concomitant]
     Dates: start: 20140227, end: 20140313
  11. LISINOPRIL [Suspect]
     Indication: PRODUCT USED FOR UNKNOWN INDICATION
     Dates: start: 20140321
  12. METFORMIN [Concomitant]
     Dates: start: 20140113

REACTIONS (1)
  - Glomerular filtration rate decreased [Unknown]
